FAERS Safety Report 16772773 (Version 1)
Quarter: 2019Q3

REPORT INFORMATION
  Report Type: Report from Study
  Country: GB (occurrence: GB)
  Receive Date: 20190904
  Receipt Date: 20190904
  Transmission Date: 20191005
  Serious: Yes (Hospitalization)
  Sender: FDA-Public Use
  Company Number: GB-ELI_LILLY_AND_COMPANY-GB201908006588

PATIENT
  Sex: Female
  Weight: 64 kg

DRUGS (14)
  1. METOCHLOPRAMIDE [Concomitant]
     Active Substance: METOCLOPRAMIDE HYDROCHLORIDE
     Indication: PROPHYLAXIS OF NAUSEA AND VOMITING
     Dosage: 10 MG, UNK
     Route: 048
     Dates: start: 20190723, end: 20190729
  2. LOPERAMIDE [LOPERAMIDE HYDROCHLORIDE] [Concomitant]
     Active Substance: LOPERAMIDE HYDROCHLORIDE
     Indication: DIARRHOEA
     Dosage: 2 MG, UNK
     Route: 048
     Dates: start: 20190728
  3. QUETIAPIN [Concomitant]
     Active Substance: QUETIAPINE
     Indication: DEPRESSION
     Dosage: 100 MG, UNK
     Route: 048
     Dates: start: 2016
  4. SALBUTAMOL [SALBUTAMOL SULFATE] [Concomitant]
     Active Substance: ALBUTEROL SULFATE
     Indication: CHRONIC OBSTRUCTIVE PULMONARY DISEASE
     Dosage: UNK
     Route: 055
     Dates: start: 201807
  5. BINIMETINIB [Concomitant]
     Active Substance: BINIMETINIB
     Indication: COLORECTAL CANCER METASTATIC
     Dosage: 45 MG, UNK
     Route: 048
     Dates: start: 20190723
  6. DIHYDROCODEINE [DIHYDROCODEINE BITARTRATE] [Concomitant]
     Indication: PAIN
     Dosage: 60 MG, UNK
     Route: 048
     Dates: start: 201807
  7. DOSULEPIN HYDROCHLORIDE [Concomitant]
     Active Substance: DOTHIEPIN HYDROCHLORIDE
     Indication: PRODUCT USED FOR UNKNOWN INDICATION
     Dosage: UNK
  8. AMLODIPINE [AMLODIPINE MESILATE] [Concomitant]
     Indication: HYPERTENSION
     Dosage: 10 MG, DAILY
     Route: 048
     Dates: start: 201807
  9. DIPROBASE [PARAFFIN, LIQUID;WHITE SOFT PARAFF [Concomitant]
     Indication: SKIN DISORDER PROPHYLAXIS
     Dosage: UNK
     Route: 061
     Dates: start: 20190723
  10. HYDROCORTISONE ROUSSEL [HYDROCORTISONE ACETAT [Concomitant]
     Indication: SKIN DISORDER PROPHYLAXIS
     Dosage: UNK
     Route: 061
     Dates: start: 20190723
  11. CETUXIMAB. [Suspect]
     Active Substance: CETUXIMAB
     Indication: COLORECTAL CANCER METASTATIC
     Dosage: 400 MG, WEEKLY (1/W)
     Route: 042
     Dates: start: 20190723, end: 20190729
  12. ENCORAFENIB [Concomitant]
     Active Substance: ENCORAFENIB
     Indication: COLORECTAL CANCER METASTATIC
     Dosage: 300 MG, DAILY
     Route: 048
     Dates: start: 20190723
  13. ONDANSETRON [Concomitant]
     Active Substance: ONDANSETRON
     Indication: NAUSEA
     Dosage: 8 MG, UNK
     Route: 048
     Dates: start: 20190729
  14. CLOPIDOGREL [Concomitant]
     Active Substance: CLOPIDOGREL BISULFATE
     Indication: PRODUCT USED FOR UNKNOWN INDICATION
     Dosage: 75 MG, DAILY
     Route: 048

REACTIONS (3)
  - Sepsis [Unknown]
  - Diarrhoea [Unknown]
  - Acute kidney injury [Recovering/Resolving]

NARRATIVE: CASE EVENT DATE: 20190803
